FAERS Safety Report 8606702-5 (Version None)
Quarter: 2012Q3

REPORT INFORMATION
  Report Type: 
  Country: None (occurrence: None)
  Receive Date: 20120820
  Receipt Date: 20120814
  Transmission Date: 20120928
  Serious: Yes (Hospitalization, Other)
  Sender: FDA-Public Use
  Company Number: US-ROCHE-1101853

PATIENT
  Sex: Female

DRUGS (2)
  1. PLAQUENIL [Concomitant]
  2. MABTHERA [Suspect]
     Indication: RHEUMATOID ARTHRITIS
     Route: 042
     Dates: start: 20100601, end: 20120301

REACTIONS (7)
  - PNEUMOTHORAX [None]
  - RHEUMATOID ARTHRITIS [None]
  - FUNGAL SKIN INFECTION [None]
  - PNEUMONIA [None]
  - CHOLECYSTECTOMY [None]
  - BILIARY TRACT DISORDER [None]
  - PYREXIA [None]
